FAERS Safety Report 15448987 (Version 1)
Quarter: 2018Q3

REPORT INFORMATION
  Report Type: Spontaneous
  Country: US (occurrence: US)
  Receive Date: 20180926
  Receipt Date: 20180926
  Transmission Date: 20181010
  Serious: No
  Sender: FDA-Public Use
  Company Number: None

PATIENT
  Age: 76 Year
  Sex: Female
  Weight: 69.75 kg

DRUGS (1)
  1. ELETRIPTAN HYDROBROMIDE 40 MG [Suspect]
     Active Substance: ELETRIPTAN HYDROBROMIDE
     Indication: MIGRAINE
     Dosage: ?          QUANTITY:1 TABLET(S);?
     Route: 048
     Dates: start: 20180520, end: 20180530

REACTIONS (3)
  - Treatment failure [None]
  - Therapeutic response changed [None]
  - Product substitution issue [None]

NARRATIVE: CASE EVENT DATE: 20180520
